FAERS Safety Report 18779210 (Version 1)
Quarter: 2021Q1

REPORT INFORMATION
  Report Type: Report from Study
  Country: HU (occurrence: HU)
  Receive Date: 20210125
  Receipt Date: 20210125
  Transmission Date: 20210419
  Serious: Yes (Other)
  Sender: FDA-Public Use
  Company Number: HU-SUN PHARMACEUTICAL INDUSTRIES LTD-2021R1-275998

PATIENT
  Age: 39 Year
  Sex: Female

DRUGS (1)
  1. DILTIAZEM. [Suspect]
     Active Substance: DILTIAZEM
     Indication: CUTANEOUS CALCIFICATION
     Dosage: 60?90 MG, DAILY
     Route: 048

REACTIONS (1)
  - Therapeutic response decreased [Unknown]
